FAERS Safety Report 6852629-9 (Version None)
Quarter: 2010Q3

REPORT INFORMATION
  Report Type: 
  Country: None (occurrence: None)
  Receive Date: 20100717
  Receipt Date: 20080118
  Transmission Date: 20110219
  Serious: No
  Sender: FDA-Public Use
  Company Number: US-PFIZER INC-2007096461

PATIENT
  Sex: Female
  Weight: 50 kg

DRUGS (4)
  1. CHANTIX [Suspect]
     Indication: SMOKING CESSATION THERAPY
     Route: 048
     Dates: start: 20070921
  2. DILANTIN [Concomitant]
     Indication: EPILEPSY
  3. SYNTHROID [Concomitant]
     Indication: THYROID DISORDER
  4. ALLEGRA [Concomitant]

REACTIONS (2)
  - DRUG INTOLERANCE [None]
  - PRURITUS [None]
